FAERS Safety Report 23499795 (Version 2)
Quarter: 2024Q1

REPORT INFORMATION
  Report Type: Spontaneous
  Country: AU (occurrence: None)
  Receive Date: 20240208
  Receipt Date: 20240227
  Transmission Date: 20240410
  Serious: Yes (Other)
  Sender: FDA-Public Use
  Company Number: AU-ROCHE-2354177

PATIENT
  Sex: Female
  Weight: 62.1 kg

DRUGS (2)
  1. KADCYLA [Suspect]
     Active Substance: ADO-TRASTUZUMAB EMTANSINE
     Indication: Metastatic neoplasm
     Route: 065
  2. KADCYLA [Suspect]
     Active Substance: ADO-TRASTUZUMAB EMTANSINE
     Indication: Non-small cell lung cancer

REACTIONS (3)
  - Off label use [Unknown]
  - Weight increased [Unknown]
  - Disease progression [Unknown]
